FAERS Safety Report 19733557 (Version 1)
Quarter: 2021Q3

REPORT INFORMATION
  Report Type: Spontaneous
  Country: JP (occurrence: JP)
  Receive Date: 20210823
  Receipt Date: 20210823
  Transmission Date: 20211014
  Serious: Yes (Hospitalization, Other)
  Sender: FDA-Public Use
  Company Number: JP-ALVOGEN-2021-ALVOGEN-117356

PATIENT
  Age: 79 Year
  Sex: Female

DRUGS (3)
  1. DARATUMUMAB [Suspect]
     Active Substance: DARATUMUMAB
     Indication: CHEMOTHERAPY
  2. BORTEZOMIB. [Suspect]
     Active Substance: BORTEZOMIB
     Indication: CHEMOTHERAPY
  3. DEXAMETHASONE. [Suspect]
     Active Substance: DEXAMETHASONE
     Indication: CHEMOTHERAPY

REACTIONS (1)
  - Chronic hepatitis C [Unknown]
